FAERS Safety Report 16563079 (Version 1)
Quarter: 2019Q3

REPORT INFORMATION
  Report Type: Other
  Country: CN (occurrence: CN)
  Receive Date: 20190711
  Receipt Date: 20190711
  Transmission Date: 20191004
  Serious: No
  Sender: FDA-Public Use
  Company Number: CN-AGG-03-2019-1956

PATIENT

DRUGS (7)
  1. AGGRASTAT [Suspect]
     Active Substance: TIROFIBAN HYDROCHLORIDE
     Indication: ANTIPLATELET THERAPY
  2. ASPIRIN. [Concomitant]
     Active Substance: ASPIRIN
     Dosage: IMMEDIATELY AFTER ADMISSION, ENTERIC-COATED TABLETS
     Route: 048
  3. CLOPIDOGREL BISULFATE. [Concomitant]
     Active Substance: CLOPIDOGREL BISULFATE
     Dosage: IMMEDIATELY AFTER ADMISSION, CLOPIDOGREL BISULFATE TABLETS
     Route: 048
  4. CLOPIDOGREL BISULFATE. [Concomitant]
     Active Substance: CLOPIDOGREL BISULFATE
     Route: 048
  5. HEPARIN [Concomitant]
     Active Substance: HEPARIN SODIUM
     Indication: ANTICOAGULANT THERAPY
     Dosage: DURING THE OPERATION
     Route: 042
  6. LOW MOLECULAR WEIGHT HEPARIN SODIUM [Concomitant]
     Active Substance: HEPARIN SODIUM
     Indication: ANTICOAGULANT THERAPY
     Dosage: FOR 5-7 DAYS AFTER THE OPERATION
     Route: 058
  7. ASPIRIN. [Concomitant]
     Active Substance: ASPIRIN
     Dosage: ENTERIC COATED TABLETS
     Route: 048

REACTIONS (1)
  - Abdominal pain [Unknown]
